FAERS Safety Report 5745415-4 (Version None)
Quarter: 2008Q2

REPORT INFORMATION
  Report Type: 
  Country: None (occurrence: None)
  Receive Date: 20080521
  Receipt Date: 20080519
  Transmission Date: 20081010
  Serious: Yes (Other)
  Sender: FDA-Public Use
  Company Number: ZA-BRISTOL-MYERS SQUIBB COMPANY-14195895

PATIENT
  Age: 24 Year
  Sex: Male

DRUGS (7)
  1. DOXORUBICIN HCL [Suspect]
     Indication: HODGKIN'S DISEASE
  2. BLEOMYCIN SULFATE [Suspect]
     Indication: HODGKIN'S DISEASE
  3. VINCRISTINE SULFATE [Suspect]
     Indication: HODGKIN'S DISEASE
  4. CHLORMETHINE HCL [Suspect]
     Indication: HODGKIN'S DISEASE
  5. PREDNISONE TAB [Suspect]
     Indication: HODGKIN'S DISEASE
  6. PROCARBAZINE HCL [Suspect]
     Indication: HODGKIN'S DISEASE
  7. VINBLASTINE SULFATE [Suspect]
     Indication: HODGKIN'S DISEASE

REACTIONS (2)
  - FEBRILE NEUTROPENIA [None]
  - MALARIA [None]
